FAERS Safety Report 11620177 (Version 2)
Quarter: 2015Q4

REPORT INFORMATION
  Report Type: Spontaneous
  Country: US (occurrence: US)
  Receive Date: 20151012
  Receipt Date: 20151015
  Transmission Date: 20160304
  Serious: No
  Sender: FDA-Public Use
  Company Number: US-SA-2015SA141381

PATIENT
  Age: 58 Year
  Sex: Female

DRUGS (2)
  1. INSULIN PUMP [Concomitant]
     Active Substance: INSULIN NOS
     Indication: BLOOD GLUCOSE
  2. AFREZZA [Suspect]
     Active Substance: INSULIN HUMAN
     Indication: TYPE 1 DIABETES MELLITUS
     Dosage: WITH MEALS
     Route: 065
     Dates: start: 20150821

REACTIONS (1)
  - Cough [Unknown]
